FAERS Safety Report 15095946 (Version 2)
Quarter: 2024Q1

REPORT INFORMATION
  Report Type: Spontaneous
  Country: US (occurrence: US)
  Receive Date: 20180702
  Receipt Date: 20240205
  Transmission Date: 20240409
  Serious: Yes (Other)
  Sender: FDA-Public Use
  Company Number: US-AUROBINDO-AUR-APL-2018-032278

PATIENT
  Age: 79 Year
  Sex: Female

DRUGS (3)
  1. CLOPIDOGREL [Suspect]
     Active Substance: CLOPIDOGREL BISULFATE
     Indication: Acute myocardial infarction
     Dosage: UNK
     Route: 065
  2. WARFARIN SODIUM [Suspect]
     Active Substance: WARFARIN SODIUM
     Indication: Atrial fibrillation
     Dosage: UNK
     Route: 065
  3. ASPIRIN [Suspect]
     Active Substance: ASPIRIN
     Indication: Atrial fibrillation
     Dosage: 81 MILLIGRAM
     Route: 065

REACTIONS (4)
  - Vaginal haematoma [Recovering/Resolving]
  - Vaginal haemorrhage [Recovering/Resolving]
  - Urinary incontinence [Recovering/Resolving]
  - Vulval disorder [Recovering/Resolving]
